FAERS Safety Report 24165547 (Version 1)
Quarter: 2024Q3

REPORT INFORMATION
  Report Type: Spontaneous
  Country: HR (occurrence: HR)
  Receive Date: 20240802
  Receipt Date: 20240802
  Transmission Date: 20241016
  Serious: Yes (Other)
  Sender: CHEPLAPHARM
  Company Number: None

PATIENT
  Age: 13 Year
  Sex: Female
  Weight: 50 kg

DRUGS (2)
  1. CLONAZEPAM [Suspect]
     Active Substance: CLONAZEPAM
     Indication: Suicide attempt
     Dosage: CRUSHED TWO TABLETS AND SNORTED?DAILY DOSE: 1 MILLIGRAM
     Route: 045
     Dates: start: 20240614, end: 20240614
  2. CLONAZEPAM [Suspect]
     Active Substance: CLONAZEPAM
     Indication: Suicide attempt
     Dosage: 26 TBL?DAILY DOSE: 13 MILLIGRAM
     Route: 048
     Dates: start: 20240615, end: 20240615

REACTIONS (3)
  - Somnolence [Unknown]
  - Suicide attempt [Unknown]
  - Incorrect route of product administration [Unknown]

NARRATIVE: CASE EVENT DATE: 20240614
